FAERS Safety Report 6695932-8 (Version None)
Quarter: 2010Q2

REPORT INFORMATION
  Report Type: 
  Country: None (occurrence: None)
  Receive Date: 20100426
  Receipt Date: 20100413
  Transmission Date: 20101027
  Serious: Yes (Other)
  Sender: FDA-Public Use
  Company Number: AU-PFIZER INC-2010046680

PATIENT
  Age: 87 Year
  Sex: Male

DRUGS (4)
  1. DILANTIN [Suspect]
     Indication: EPILEPSY
     Dosage: 100 MG IN THE MORNING AND NIGHT
     Dates: start: 19840101
  2. DILANTIN [Suspect]
     Dosage: 300 MG, UNK
  3. WARFARIN [Concomitant]
  4. LANOXIN [Concomitant]
     Indication: CARDIAC DISORDER

REACTIONS (7)
  - AMNESIA [None]
  - CARDIAC OPERATION [None]
  - CEREBROVASCULAR ACCIDENT [None]
  - COGNITIVE DISORDER [None]
  - CONVULSION [None]
  - DEMENTIA ALZHEIMER'S TYPE [None]
  - HALLUCINATION [None]
